FAERS Safety Report 16113984 (Version 2)
Quarter: 2021Q2

REPORT INFORMATION
  Report Type: Spontaneous
  Country: US (occurrence: US)
  Receive Date: 20190325
  Receipt Date: 20210413
  Transmission Date: 20210716
  Serious: No
  Sender: FDA-Public Use
  Company Number: US-ALLERGAN-1827309US

PATIENT
  Age: 65 Year
  Sex: Female

DRUGS (6)
  1. REFRESH CONTACT [Concomitant]
     Indication: DRY EYE
     Dosage: UNK UNK, PRN
     Route: 047
  2. DORZOLAMIDE [Suspect]
     Active Substance: DORZOLAMIDE
     Indication: GLAUCOMA
     Dosage: UNK, TID
     Route: 047
     Dates: start: 2017
  3. LUMIGAN [Suspect]
     Active Substance: BIMATOPROST
     Indication: GLAUCOMA
     Dosage: 2 GTT, QHS
     Route: 047
     Dates: start: 2017
  4. REFRESH [Concomitant]
     Active Substance: UNSPECIFIED INGREDIENT
     Indication: DRY EYE
     Dosage: UNK UNK, PRN
     Route: 047
  5. DORZOLAMIDE [Suspect]
     Active Substance: DORZOLAMIDE
     Dosage: UNK, BID
     Route: 047
     Dates: start: 2017
  6. SYSTANE (HYPROMELLOSE 2910 (4000 MPA.S)) [Concomitant]
     Active Substance: HYPROMELLOSE 2910 (4000 MPA.S)
     Indication: DRY EYE
     Dosage: UNK UNK, QHS
     Route: 047

REACTIONS (3)
  - Dyspepsia [Not Recovered/Not Resolved]
  - Abdominal distension [Not Recovered/Not Resolved]
  - Nausea [Not Recovered/Not Resolved]

NARRATIVE: CASE EVENT DATE: 2017
